FAERS Safety Report 8318703 (Version 2)
Quarter: 2013Q1

REPORT INFORMATION
  Report Type: Spontaneous
  Country: US (occurrence: US)
  Receive Date: 20120103
  Receipt Date: 20130221
  Transmission Date: 20140127
  Serious: Yes (Life-Threatening, Congenital Anomaly, Other)
  Sender: FDA-Public Use
  Company Number: US-PFIZER INC-2011289534

PATIENT
  Sex: Male

DRUGS (6)
  1. ZOLOFT [Suspect]
     Dosage: UNK
     Route: 064
     Dates: start: 200101, end: 200206
  2. COMPAZINE [Concomitant]
     Dosage: UNK
     Route: 064
  3. AZITHROMYCIN [Concomitant]
     Dosage: UNK
     Route: 064
  4. PRENATAL VITAMINS [Concomitant]
     Dosage: UNK
     Route: 064
  5. ZANTAC [Concomitant]
     Dosage: UNK
     Route: 064
  6. IRON [Concomitant]
     Dosage: UNK
     Route: 064

REACTIONS (5)
  - Maternal exposure timing unspecified [Unknown]
  - Heart disease congenital [Unknown]
  - Asthma [Unknown]
  - Musculoskeletal disorder [Unknown]
  - Lung disorder [Unknown]
